FAERS Safety Report 7554908-9 (Version None)
Quarter: 2011Q2

REPORT INFORMATION
  Report Type: 
  Country: None (occurrence: None)
  Receive Date: 20110617
  Receipt Date: 20110603
  Transmission Date: 20111010
  Serious: Yes (Hospitalization, Disabling)
  Sender: FDA-Public Use
  Company Number: DK-GENENTECH-317981

PATIENT
  Sex: Male
  Weight: 69 kg

DRUGS (21)
  1. VINCRISTINE [Suspect]
     Dosage: 11 MG, UNK
     Route: 042
     Dates: start: 20110512
  2. VALACYCLOVIR [Concomitant]
     Indication: PROPHYLAXIS
     Dosage: 500 MG, UNK
     Dates: start: 20110307
  3. RITUXIMAB [Suspect]
     Indication: DIFFUSE LARGE B-CELL LYMPHOMA
     Dosage: 700 MG, UNK
     Route: 042
     Dates: start: 20110405
  4. DOXORUBICIN HCL [Suspect]
     Dosage: 92.5 MG, UNK
     Route: 042
     Dates: start: 20110512
  5. VINCRISTINE [Suspect]
     Indication: DIFFUSE LARGE B-CELL LYMPHOMA
     Dosage: 2 MG, UNK
     Route: 042
     Dates: start: 20110405
  6. CYCLOPHOSPHAMIDE [Suspect]
     Dosage: 1380 MG, UNK
     Route: 042
     Dates: start: 20110512
  7. DOXORUBICIN HCL [Suspect]
     Dosage: 95 MG, UNK
     Route: 042
     Dates: start: 20110428
  8. NEUPOGEN [Suspect]
     Dosage: 6 MG, UNK
     Route: 058
     Dates: start: 20110513
  9. CYCLOPHOSPHAMIDE [Suspect]
     Indication: DIFFUSE LARGE B-CELL LYMPHOMA
     Dosage: 1394 MG, UNK
     Route: 042
     Dates: start: 20110405
  10. CYCLOPHOSPHAMIDE [Suspect]
     Dosage: 1425 MG, UNK
     Route: 042
     Dates: start: 20110428
  11. NEUPOGEN [Suspect]
     Indication: DIFFUSE LARGE B-CELL LYMPHOMA
     Dosage: 6 MG, UNK
     Route: 058
     Dates: start: 20110406
  12. SULFAMETHOXAZOLE AND TRIMETHOPRIM [Concomitant]
     Indication: PROPHYLAXIS
     Dosage: 1 UNK, UNK
     Dates: start: 20110307, end: 20110413
  13. PREDNISONE [Suspect]
     Dosage: 100 MG, UNK
     Route: 048
     Dates: start: 20110512
  14. DOXORUBICIN HCL [Suspect]
     Indication: DIFFUSE LARGE B-CELL LYMPHOMA
     Dosage: 93 MG, UNK
     Route: 042
     Dates: start: 20110405
  15. RITUXIMAB [Suspect]
     Dosage: 700 MG, UNK
     Route: 042
     Dates: start: 20110428
  16. RITUXIMAB [Suspect]
     Dosage: 700 MG, UNK
     Route: 042
     Dates: start: 20110512
  17. PREDNISONE [Suspect]
     Indication: DIFFUSE LARGE B-CELL LYMPHOMA
     Dosage: 100 MG, UNK
     Route: 048
     Dates: start: 20110405
  18. PREDNISONE [Suspect]
     Dosage: 100 MG, UNK
     Route: 048
     Dates: start: 20110428
  19. VINBLASTINE SULFATE [Suspect]
     Indication: DIFFUSE LARGE B-CELL LYMPHOMA
     Dosage: 11.4 MG, UNK
     Route: 042
     Dates: start: 20110428
  20. VINBLASTINE SULFATE [Suspect]
     Dosage: 11 MG, UNK
     Route: 042
     Dates: start: 20110512
  21. NEUPOGEN [Suspect]
     Dosage: 6 MG, UNK
     Route: 058
     Dates: start: 20110429

REACTIONS (4)
  - DEHYDRATION [None]
  - DIARRHOEA [None]
  - PARESIS [None]
  - FEBRILE NEUTROPENIA [None]
